FAERS Safety Report 6760083-0 (Version None)
Quarter: 2010Q2

REPORT INFORMATION
  Report Type: 
  Country: None (occurrence: None)
  Receive Date: 20100608
  Receipt Date: 20100601
  Transmission Date: 20101027
  Serious: Yes (Other)
  Sender: FDA-Public Use
  Company Number: US-BRISTOL-MYERS SQUIBB COMPANY-14461776

PATIENT
  Sex: Female

DRUGS (2)
  1. ABILIFY [Suspect]
     Indication: SCHIZOPHRENIA
     Route: 048
  2. ABILIFY [Suspect]
     Indication: SCHIZOPHRENIA

REACTIONS (6)
  - CAESAREAN SECTION [None]
  - CONFUSIONAL STATE [None]
  - LIVE BIRTH [None]
  - PREGNANCY [None]
  - PROLONGED PREGNANCY [None]
  - PSYCHOTIC DISORDER [None]
